FAERS Safety Report 9386590 (Version 1)
Quarter: 2013Q3

REPORT INFORMATION
  Report Type: Spontaneous
  Country: US (occurrence: None)
  Receive Date: 20130703
  Receipt Date: 20130703
  Transmission Date: 20140515
  Serious: Yes (Other)
  Sender: FDA-Public Use
  Company Number: None

PATIENT
  Age: 36 Year
  Sex: Female
  Weight: 93.9 kg

DRUGS (1)
  1. GAMMAGARD LIQUID [Suspect]
     Dosage: 2 BOTTLES
     Route: 042
     Dates: start: 20130527, end: 20130527

REACTIONS (3)
  - Rash erythematous [None]
  - Skin discolouration [None]
  - Pruritus [None]
